FAERS Safety Report 6013050-9 (Version None)
Quarter: 2008Q4

REPORT INFORMATION
  Report Type: 
  Country: None (occurrence: None)
  Receive Date: 20081219
  Receipt Date: 20081209
  Transmission Date: 20090506
  Serious: Yes (Hospitalization)
  Sender: FDA-Public Use
  Company Number: IN-BRISTOL-MYERS SQUIBB COMPANY-14437206

PATIENT
  Age: 37 Year
  Sex: Female

DRUGS (4)
  1. ABATACEPT [Suspect]
     Indication: GLOMERULONEPHRITIS PROLIFERATIVE
     Route: 042
     Dates: start: 20071025
  2. MYCOPHENOLATE MOFETIL [Suspect]
     Route: 048
     Dates: start: 20081025
  3. METHYLPREDNISOLONE 16MG TAB [Suspect]
     Dates: start: 20070612
  4. HYDROXYCHLOROQUINE SULFATE [Concomitant]
     Dates: start: 20070612

REACTIONS (1)
  - OPTIC NEURITIS [None]
